FAERS Safety Report 23931739 (Version 1)
Quarter: 2024Q2

REPORT INFORMATION
  Report Type: Spontaneous
  Country: FR (occurrence: FR)
  Receive Date: 20240603
  Receipt Date: 20240603
  Transmission Date: 20240716
  Serious: Yes (Hospitalization)
  Sender: FDA-Public Use
  Company Number: None

PATIENT
  Age: 69 Year
  Sex: Male

DRUGS (2)
  1. ALPRAZOLAM [Suspect]
     Active Substance: ALPRAZOLAM
     Indication: Intentional overdose
     Dosage: TIME INTERVAL: TOTAL
     Route: 048
     Dates: start: 20240422, end: 20240422
  2. PAROXETINE [Suspect]
     Active Substance: PAROXETINE
     Indication: Intentional overdose
     Dosage: TIME INTERVAL: TOTAL: PAROXETINE BASE
     Route: 048
     Dates: start: 20240422, end: 20240422

REACTIONS (3)
  - Poisoning deliberate [Recovered/Resolved]
  - Bradypnoea [Recovered/Resolved]
  - Disturbance in attention [Recovered/Resolved]

NARRATIVE: CASE EVENT DATE: 20240422
